FAERS Safety Report 4919124-5 (Version None)
Quarter: 2006Q1

REPORT INFORMATION
  Report Type: 
  Country: None (occurrence: None)
  Receive Date: 20060222
  Receipt Date: 20060210
  Transmission Date: 20060701
  Serious: Yes (Hospitalization)
  Sender: FDA-Public Use
  Company Number: FR-SANOFI-SYNTHELABO-A02200600388

PATIENT
  Age: 86 Year
  Sex: Male

DRUGS (7)
  1. PLAVIX [Suspect]
     Indication: DRUG USE FOR UNKNOWN INDICATION
     Route: 048
  2. TERCIAN [Suspect]
     Indication: DRUG USE FOR UNKNOWN INDICATION
     Dosage: UNK
     Route: 048
     Dates: end: 20060115
  3. AMIODARONE [Suspect]
     Indication: ARRHYTHMIA SUPRAVENTRICULAR
     Route: 048
  4. STABLON [Suspect]
     Indication: DRUG USE FOR UNKNOWN INDICATION
     Route: 048
  5. ZOPICLONE [Suspect]
     Indication: DRUG USE FOR UNKNOWN INDICATION
     Dosage: UNK
     Route: 048
  6. PROSCAR [Suspect]
     Indication: PROSTATIC ADENOMA
     Route: 048
  7. VASTEN [Concomitant]
     Indication: DRUG USE FOR UNKNOWN INDICATION
     Dosage: UNK
     Route: 048

REACTIONS (7)
  - ABASIA [None]
  - BLOOD PRESSURE SYSTOLIC INCREASED [None]
  - COORDINATION ABNORMAL [None]
  - DEHYDRATION [None]
  - DISORIENTATION [None]
  - EXTRAPYRAMIDAL DISORDER [None]
  - STAPHYLOCOCCAL INFECTION [None]
